FAERS Safety Report 5861316-5 (Version None)
Quarter: 2008Q3

REPORT INFORMATION
  Report Type: 
  Country: None (occurrence: None)
  Receive Date: 20080827
  Receipt Date: 20080416
  Transmission Date: 20090109
  Serious: No
  Sender: FDA-Public Use
  Company Number: US-ABBOTT-08P-163-0447463-00

PATIENT

DRUGS (2)
  1. NIASPAN [Suspect]
     Indication: DRUG USE FOR UNKNOWN INDICATION
  2. NIASPAN [Suspect]

REACTIONS (2)
  - FLUSHING [None]
  - GASTROINTESTINAL DISORDER [None]
